FAERS Safety Report 4306948-0 (Version None)
Quarter: 2004Q1

REPORT INFORMATION
  Report Type: 
  Country: None (occurrence: None)
  Receive Date: 20040227
  Receipt Date: 20031009
  Transmission Date: 20041129
  Serious: Yes (Hospitalization)
  Sender: FDA-Public Use
  Company Number: WAES 0310USA01302

PATIENT
  Age: 39 Year
  Sex: Female
  Weight: 57 kg

DRUGS (14)
  1. ZYRTEC [Concomitant]
  2. PLAVIX [Concomitant]
     Indication: CEREBROVASCULAR ACCIDENT
     Route: 048
     Dates: start: 20001101
  3. NEXIUM [Concomitant]
     Indication: GASTROOESOPHAGEAL REFLUX DISEASE
     Dates: start: 19970101
  4. PAXIL [Concomitant]
     Indication: DEPRESSION
     Dates: end: 20030901
  5. PREDNISONE [Concomitant]
  6. VIOXX [Suspect]
     Indication: OSTEOARTHRITIS
     Route: 048
     Dates: start: 20010101, end: 20010715
  7. VIOXX [Suspect]
     Route: 048
     Dates: start: 20010716, end: 20010101
  8. VIOXX [Suspect]
     Route: 048
     Dates: start: 20020201, end: 20020701
  9. VIOXX [Suspect]
     Indication: PAIN IN EXTREMITY
     Route: 048
     Dates: start: 20010101, end: 20010715
  10. VIOXX [Suspect]
     Route: 048
     Dates: start: 20010716, end: 20010101
  11. VIOXX [Suspect]
     Route: 048
     Dates: start: 20020201, end: 20020701
  12. ZOVIRAX [Concomitant]
  13. TRIMOX [Concomitant]
  14. CELEBREX [Concomitant]

REACTIONS (72)
  - ABDOMINAL PAIN UPPER [None]
  - ALOPECIA [None]
  - ANAEMIA MACROCYTIC [None]
  - ANXIETY [None]
  - ASTHENIA [None]
  - BACK INJURY [None]
  - BACK PAIN [None]
  - BLINDNESS [None]
  - BLOOD TRIGLYCERIDES INCREASED [None]
  - BRONCHITIS [None]
  - CARCINOMA [None]
  - CAROTID ARTERY DISEASE [None]
  - CAROTID ARTERY STENOSIS [None]
  - CAROTID BRUIT [None]
  - CEREBRAL INFARCTION [None]
  - CEREBRAL THROMBOSIS [None]
  - CEREBROVASCULAR ACCIDENT [None]
  - CHEST DISCOMFORT [None]
  - CHEST PAIN [None]
  - CHRONIC OBSTRUCTIVE AIRWAYS DISEASE [None]
  - COMPRESSION FRACTURE [None]
  - CONTUSION [None]
  - DEPRESSION [None]
  - DRUG INEFFECTIVE [None]
  - DYSARTHRIA [None]
  - DYSPEPSIA [None]
  - DYSPHAGIA [None]
  - DYSPNOEA [None]
  - ELECTROCARDIOGRAM QT PROLONGED [None]
  - ELECTROCARDIOGRAM ST-T CHANGE [None]
  - FALL [None]
  - FATIGUE [None]
  - GAIT DISTURBANCE [None]
  - HAEMATOCHEZIA [None]
  - HEADACHE [None]
  - HYPERCHOLESTEROLAEMIA [None]
  - HYPERHIDROSIS [None]
  - HYPERREFLEXIA [None]
  - HYPERTRIGLYCERIDAEMIA [None]
  - HYPOAESTHESIA [None]
  - INSOMNIA [None]
  - MIGRAINE [None]
  - MYALGIA [None]
  - MYOFASCIAL PAIN SYNDROME [None]
  - NASAL CONGESTION [None]
  - NAUSEA [None]
  - NECK PAIN [None]
  - OSTEOPENIA [None]
  - OSTEOPOROSIS [None]
  - OXYGEN SATURATION DECREASED [None]
  - PAIN [None]
  - PAIN IN EXTREMITY [None]
  - PARAESTHESIA [None]
  - PHARYNGOLARYNGEAL PAIN [None]
  - PHONOPHOBIA [None]
  - PHOTOPHOBIA [None]
  - RADICULOPATHY [None]
  - RASH [None]
  - RASH GENERALISED [None]
  - RED BLOOD CELL SEDIMENTATION RATE INCREASED [None]
  - RHINITIS ALLERGIC [None]
  - SINUSITIS [None]
  - SLEEP DISORDER [None]
  - SPINAL FRACTURE [None]
  - STRESS SYMPTOMS [None]
  - TENDONITIS [None]
  - THROMBOCYTOPENIA [None]
  - TRANSIENT ISCHAEMIC ATTACK [None]
  - TREMOR [None]
  - VISUAL DISTURBANCE [None]
  - VITAMIN B12 DEFICIENCY [None]
  - VOMITING [None]
